FAERS Safety Report 21996789 (Version 5)
Quarter: 2025Q3

REPORT INFORMATION
  Report Type: Report from Study
  Country: US (occurrence: US)
  Receive Date: 20230215
  Receipt Date: 20250726
  Transmission Date: 20251021
  Serious: Yes (Other)
  Sender: JAZZ
  Company Number: US-JAZZ-2023-US-003464

PATIENT
  Sex: Male
  Weight: 107.8 kg

DRUGS (2)
  1. XYREM [Suspect]
     Active Substance: SODIUM OXYBATE
     Indication: Narcolepsy
     Dosage: 4ML AT BEDTIME REPEAT 1 DOSE AMOUNT:4000 MG, 4 ML AT BEDTIME 2ND DOSE OF 4ML 2.5-4; ORAL USE.
  2. XYREM [Suspect]
     Active Substance: SODIUM OXYBATE
     Indication: Hypersomnia

REACTIONS (3)
  - Diabetes mellitus [Unknown]
  - Diabetic neuropathy [Unknown]
  - Weight decreased [Unknown]
